FAERS Safety Report 6277784-3 (Version None)
Quarter: 2009Q3

REPORT INFORMATION
  Report Type: 
  Country: None (occurrence: None)
  Receive Date: 20090717
  Receipt Date: 20090717
  Transmission Date: 20100115
  Serious: No
  Sender: FDA-Public Use
  Company Number: None

PATIENT
  Age: 70 Year
  Sex: Male
  Weight: 80.2867 kg

DRUGS (3)
  1. GABAPENTIN [Suspect]
     Indication: HEADACHE
     Dosage: 400MG 0 TO 3 PO
     Route: 048
     Dates: start: 20090505, end: 20090713
  2. BACLOFEN [Concomitant]
  3. FINASTERIDE [Concomitant]

REACTIONS (1)
  - DEAFNESS UNILATERAL [None]
